FAERS Safety Report 4431029-5 (Version None)
Quarter: 2004Q3

REPORT INFORMATION
  Report Type: 
  Country: None (occurrence: None)
  Receive Date: 20040824
  Receipt Date: 20040206
  Transmission Date: 20050211
  Serious: No
  Sender: FDA-Public Use
  Company Number: US-BRISTOL-MYERS SQUIBB COMPANY-12498929

PATIENT
  Age: 54 Year
  Sex: Male
  Weight: 68 kg

DRUGS (6)
  1. MEGACE [Suspect]
     Indication: WEIGHT INCREASED
     Dosage: SWITCHED TO GENERIC BRAND ^ONE MONTH AGO^
     Route: 048
  2. FUZEON [Concomitant]
  3. KALETRA [Concomitant]
  4. REYATAZ [Concomitant]
  5. EPIVIR [Concomitant]
  6. VIREAD [Concomitant]

REACTIONS (2)
  - ABDOMINAL DISTENSION [None]
  - ABDOMINAL PAIN UPPER [None]
